FAERS Safety Report 5253062-6 (Version None)
Quarter: 2007Q1

REPORT INFORMATION
  Report Type: 
  Country: None (occurrence: None)
  Receive Date: 20061201
  Receipt Date: 20060827
  Transmission Date: 20070707
  Serious: No
  Sender: FDA-Public Use
  Company Number: 2006PV020130

PATIENT
  Age: 59 Year
  Sex: Male
  Weight: 90.7194 kg

DRUGS (11)
  1. BYETTA [Suspect]
     Indication: DIABETES MELLITUS NON-INSULIN-DEPENDENT
     Dosage: 10 MCG; 5 MCG; BID; SC
     Route: 058
     Dates: start: 20051101, end: 20051201
  2. BYETTA [Suspect]
     Indication: DIABETES MELLITUS NON-INSULIN-DEPENDENT
     Dosage: 10 MCG; 5 MCG; BID; SC
     Route: 058
     Dates: start: 20060422, end: 20060101
  3. BYETTA [Suspect]
     Indication: DIABETES MELLITUS NON-INSULIN-DEPENDENT
     Dosage: 10 MCG; 5 MCG; BID; SC
     Route: 058
     Dates: start: 20051201, end: 20060421
  4. BYETTA [Suspect]
     Indication: DIABETES MELLITUS NON-INSULIN-DEPENDENT
     Dosage: 10 MCG; 5 MCG; BID; SC
     Route: 058
     Dates: start: 20060525, end: 20060826
  5. AVANDAMET [Concomitant]
  6. GLYBURIDE [Concomitant]
  7. LIPITOR [Concomitant]
  8. ACYCLOVIR [Concomitant]
  9. LISINOPRIL [Concomitant]
  10. PROSTATE MEDICATION [Concomitant]
  11. ASPIRIN [Concomitant]

REACTIONS (6)
  - ABDOMINAL DISTENSION [None]
  - DRUG INEFFECTIVE [None]
  - FEELING COLD [None]
  - HAEMATEMESIS [None]
  - NAUSEA [None]
  - WEIGHT DECREASED [None]
